FAERS Safety Report 17412521 (Version 1)
Quarter: 2020Q1

REPORT INFORMATION
  Report Type: Spontaneous
  Country: US (occurrence: US)
  Receive Date: 20200213
  Receipt Date: 20200213
  Transmission Date: 20200409
  Serious: Yes (Other)
  Sender: FDA-Public Use
  Company Number: US-SA-2020SA036116

PATIENT
  Age: 53 Year
  Sex: Female

DRUGS (15)
  1. LEVETIRACETAM. [Concomitant]
     Active Substance: LEVETIRACETAM
  2. POTASSIUM CITRATE. [Concomitant]
     Active Substance: POTASSIUM CITRATE
  3. HYDROXYZINE HYDROCHLORIDE. [Concomitant]
     Active Substance: HYDROXYZINE HYDROCHLORIDE
  4. TAMSULOSIN [TAMSULOSIN HYDROCHLORIDE] [Concomitant]
     Active Substance: TAMSULOSIN HYDROCHLORIDE
  5. EMGALITY [Concomitant]
     Active Substance: GALCANEZUMAB-GNLM
  6. DULERA [Concomitant]
     Active Substance: FORMOTEROL FUMARATE DIHYDRATE\MOMETASONE FUROATE
  7. RIZATRIPTAN. [Concomitant]
     Active Substance: RIZATRIPTAN
  8. RABEPRAZOLE [Concomitant]
     Active Substance: RABEPRAZOLE
  9. DUPIXENT [Suspect]
     Active Substance: DUPILUMAB
     Indication: IDIOPATHIC URTICARIA
     Dosage: 300 MG, QOW
     Dates: start: 20191113
  10. DICYCLOMINE [Concomitant]
     Active Substance: DICYCLOMINE HYDROCHLORIDE
  11. SPIRIVA [Concomitant]
     Active Substance: TIOTROPIUM BROMIDE MONOHYDRATE
  12. ALBUTEROL [SALBUTAMOL] [Concomitant]
     Active Substance: ALBUTEROL
  13. FOLIC ACID. [Concomitant]
     Active Substance: FOLIC ACID
  14. VITAMIN D NOS [Concomitant]
     Active Substance: VITAMIN D NOS
  15. MONTELUKAST [Concomitant]
     Active Substance: MONTELUKAST SODIUM

REACTIONS (3)
  - Syncope [Not Recovered/Not Resolved]
  - Dizziness [Not Recovered/Not Resolved]
  - Product use in unapproved indication [Unknown]
